FAERS Safety Report 8575748-8 (Version None)
Quarter: 2012Q3

REPORT INFORMATION
  Report Type: 
  Country: None (occurrence: None)
  Receive Date: 20120807
  Receipt Date: 20120806
  Transmission Date: 20120928
  Serious: Yes (Other)
  Sender: FDA-Public Use
  Company Number: PHHY2010CA03651

PATIENT
  Sex: Female

DRUGS (3)
  1. SANDOSTATIN LAR [Suspect]
     Dosage: 40 MG, EVERY 4 WEEKS
     Route: 030
  2. SYNTHROID [Concomitant]
  3. SANDOSTATIN LAR [Suspect]
     Indication: NEUROENDOCRINE TUMOUR
     Dosage: 30 MG, QMO
     Route: 030
     Dates: start: 20091221

REACTIONS (18)
  - MYALGIA [None]
  - ARTHRALGIA [None]
  - HEADACHE [None]
  - EPISTAXIS [None]
  - ALOPECIA [None]
  - ANGER [None]
  - ANXIETY [None]
  - CONFUSIONAL STATE [None]
  - FEAR [None]
  - DIARRHOEA [None]
  - FLATULENCE [None]
  - DIZZINESS [None]
  - CYSTITIS [None]
  - FATIGUE [None]
  - PAIN [None]
  - INSOMNIA [None]
  - DIPLOPIA [None]
  - MALAISE [None]
